FAERS Safety Report 4850759-4 (Version None)
Quarter: 2005Q4

REPORT INFORMATION
  Report Type: 
  Country: None (occurrence: None)
  Receive Date: 20051208
  Receipt Date: 20051121
  Transmission Date: 20060501
  Serious: Yes (Hospitalization)
  Sender: FDA-Public Use
  Company Number: BR200511002073

PATIENT
  Age: 70 Year
  Sex: Female
  Weight: 67.3 kg

DRUGS (9)
  1. PEMETREXED              (PEMETREXED) VIAL [Suspect]
     Indication: LUNG NEOPLASM MALIGNANT
     Dosage: 825 MG, OTHER, INTRAVENOUS
     Route: 042
     Dates: start: 20050823
  2. CISPLATIN                (CISPLATIN) VIAL [Suspect]
     Indication: LUNG NEOPLASM MALIGNANT
     Dosage: 124 MG, OTHER, INTRAVENOUS
     Route: 042
     Dates: start: 20050823
  3. HYDROCHLOROTHIAZIDE [Concomitant]
  4. NIFEDIPINE [Concomitant]
  5. RANITIDINE [Concomitant]
  6. MINERAL OIL EMULSION           (MINERAL OIL EMULSION) [Concomitant]
  7. ATROVENT [Concomitant]
  8. BEROTEC           (FENOTEROL HYDROBROMIDE) [Concomitant]
  9. TYLEX [Concomitant]

REACTIONS (3)
  - DYSPNOEA [None]
  - PERFORMANCE STATUS DECREASED [None]
  - RESPIRATORY TRACT INFECTION [None]
